FAERS Safety Report 7224127-4 (Version None)
Quarter: 2011Q1

REPORT INFORMATION
  Report Type: 
  Country: None (occurrence: None)
  Receive Date: 20110113
  Receipt Date: 20090123
  Transmission Date: 20110831
  Serious: No
  Sender: FDA-Public Use
  Company Number: 2009BI002604

PATIENT
  Age: 56 Year
  Sex: Female

DRUGS (2)
  1. TYSABRI [Suspect]
     Route: 042
  2. TYSABRI [Suspect]
     Indication: MULTIPLE SCLEROSIS
     Route: 042
     Dates: start: 20070307

REACTIONS (7)
  - NAUSEA [None]
  - MALAISE [None]
  - FEELINGS OF WORTHLESSNESS [None]
  - FEELING ABNORMAL [None]
  - DRUG EFFECT DECREASED [None]
  - FATIGUE [None]
  - MOBILITY DECREASED [None]
